FAERS Safety Report 18965014 (Version 1)
Quarter: 2021Q1

REPORT INFORMATION
  Report Type: Spontaneous
  Country: US (occurrence: US)
  Receive Date: 20210303
  Receipt Date: 20210303
  Transmission Date: 20210420
  Serious: No
  Sender: FDA-Public Use
  Company Number: US-AMNEAL PHARMACEUTICALS-2020-AMRX-01709

PATIENT
  Age: 56 Year
  Sex: Female

DRUGS (7)
  1. RYTARY [Suspect]
     Active Substance: CARBIDOPA\LEVODOPA
     Dosage: 61.25/245 MG ALTERNATING 3 CAPSULES TWICE DAILY AND 2 CAPSULES TWICE DAILY
     Route: 048
     Dates: start: 2020, end: 2020
  2. RYTARY [Suspect]
     Active Substance: CARBIDOPA\LEVODOPA
     Dosage: 61.25/245 MG, 2 CAPSULES, 3 /DAY
     Route: 048
     Dates: start: 2020, end: 2020
  3. RYTARY [Suspect]
     Active Substance: CARBIDOPA\LEVODOPA
     Indication: PRODUCT USED FOR UNKNOWN INDICATION
     Dosage: 36.25/145 MG, 2 CAPSULES, 3 /DAY; FOR THE PAST 6 MONTHS
     Route: 048
  4. RYTARY [Suspect]
     Active Substance: CARBIDOPA\LEVODOPA
     Dosage: 61.25/245 MG, 1 CAPSULES, 4 /DAY
     Route: 048
     Dates: start: 20200716
  5. RYTARY [Suspect]
     Active Substance: CARBIDOPA\LEVODOPA
     Dosage: 48.75/195 MG, 2 CAPSULES, 4 /DAY
     Route: 048
     Dates: start: 20200716
  6. RYTARY [Suspect]
     Active Substance: CARBIDOPA\LEVODOPA
     Dosage: 48.75/195 MG, 1 CAPSULES, 3 /DAY
     Route: 048
     Dates: start: 20200310, end: 2020
  7. RYTARY [Suspect]
     Active Substance: CARBIDOPA\LEVODOPA
     Dosage: 48.75/195 MG, 1 CAPSULES, 3 /DAY
     Route: 048
     Dates: start: 20200511, end: 2020

REACTIONS (7)
  - Impaired driving ability [Unknown]
  - Prescribed overdose [Unknown]
  - Therapy cessation [Unknown]
  - Inappropriate schedule of product administration [Unknown]
  - Speech disorder [Unknown]
  - Bedridden [Unknown]
  - Dyskinesia [Unknown]

NARRATIVE: CASE EVENT DATE: 2020
